FAERS Safety Report 20641127 (Version 6)
Quarter: 2022Q2

REPORT INFORMATION
  Report Type: Report from Study
  Country: IL (occurrence: IL)
  Receive Date: 20220327
  Receipt Date: 20220603
  Transmission Date: 20220721
  Serious: Yes (Hospitalization, Other)
  Sender: FDA-Public Use
  Company Number: IL-ABBVIE-22K-082-4329712-00

PATIENT
  Age: 78 Year
  Sex: Male

DRUGS (6)
  1. CARBIDOPA\LEVODOPA [Suspect]
     Active Substance: CARBIDOPA\LEVODOPA
     Indication: Parkinson^s disease
     Route: 050
     Dates: start: 20171223
  2. CARBIDOPA\LEVODOPA [Suspect]
     Active Substance: CARBIDOPA\LEVODOPA
     Dosage: CURRENT: MORNING DOSE 10.0 ML, CONTINUOUS DAY 5.0 ML/HOUR, EXTRA DOSE 0.5 ML
     Route: 050
  3. CARBIDOPA\LEVODOPA [Suspect]
     Active Substance: CARBIDOPA\LEVODOPA
     Dosage: CURRENT: MORNING DOSE 8.0ML, CONTINUOUS DAY 4.7 ML/HOUR, EXTRA DOSE 0.5 ML
     Route: 050
  4. CARBIDOPA\LEVODOPA [Suspect]
     Active Substance: CARBIDOPA\LEVODOPA
     Dosage: MORNING DOSE 10.0 ML, CONTINUOUS DAY 5.0 ML/HOUR, EXTRA DOSE?0.5 ML
     Route: 050
  5. CARBIDOPA\LEVODOPA [Suspect]
     Active Substance: CARBIDOPA\LEVODOPA
     Dosage: MORNING DOSE(ML) 8.0,CONTINUOUS DOSE(ML/H)4.7 ,EXTRA?DOSE(ML)0.5,NIGHT CD (ML/H)1.7
     Route: 050
  6. CARBIDOPA\LEVODOPA [Suspect]
     Active Substance: CARBIDOPA\LEVODOPA
     Dosage: MORNING DOSE(ML) 8.0,CONTINUOUS DOSE(ML/H)4.7 ,EXTRA?DOSE(ML)0.5,NIGHT CD (ML/H)1.7
     Route: 050

REACTIONS (7)
  - Intestinal obstruction [Recovered/Resolved]
  - Device issue [Recovered/Resolved]
  - Akathisia [Unknown]
  - Hallucination [Unknown]
  - Constipation [Unknown]
  - Stoma site erythema [Unknown]
  - Stoma site discharge [Unknown]

NARRATIVE: CASE EVENT DATE: 20220330
